FAERS Safety Report 25959081 (Version 2)
Quarter: 2025Q4

REPORT INFORMATION
  Report Type: Spontaneous
  Country: EU (occurrence: EU)
  Receive Date: 20251025
  Receipt Date: 20251109
  Transmission Date: 20260119
  Serious: Yes (Other)
  Sender: ABBVIE
  Company Number: EU-ABBVIE-6519565

PATIENT
  Age: 74 Year
  Sex: Female

DRUGS (2)
  1. HUMIRA [Suspect]
     Active Substance: ADALIMUMAB
     Indication: Psoriasis
     Route: 058
     Dates: start: 2009, end: 201609
  2. METHOTREXATE [Concomitant]
     Active Substance: METHOTREXATE
     Indication: Synovitis

REACTIONS (6)
  - Paget^s disease of nipple [Unknown]
  - Erythema [Unknown]
  - Latent tuberculosis [Unknown]
  - Pruritus [Unknown]
  - Skin exfoliation [Unknown]
  - Synovitis [Recovering/Resolving]

NARRATIVE: CASE EVENT DATE: 20150101
